FAERS Safety Report 17287242 (Version 2)
Quarter: 2020Q1

REPORT INFORMATION
  Report Type: Report from Study
  Country: None (occurrence: US)
  Receive Date: 20200120
  Receipt Date: 20200127
  Transmission Date: 20200409
  Serious: Yes (Death, Other)
  Sender: FDA-Public Use
  Company Number: US-ABBVIE-20K-163-3238628-00

PATIENT

DRUGS (2)
  1. SELINEXOR [Suspect]
     Active Substance: SELINEXOR
     Indication: B-CELL LYMPHOMA
     Dosage: 1-2 TIMES WEEKLY
     Route: 048
  2. IMBRUVICA [Suspect]
     Active Substance: IBRUTINIB
     Indication: B-CELL LYMPHOMA
     Route: 048

REACTIONS (18)
  - Blood alkaline phosphatase increased [Unknown]
  - Neutropenia [Unknown]
  - Pneumonitis [Unknown]
  - Haemorrhage [Unknown]
  - Weight increased [Unknown]
  - Multiple organ dysfunction syndrome [Unknown]
  - Infection [Fatal]
  - Hypertension [Unknown]
  - Upper respiratory tract infection [Unknown]
  - Tachycardia [Unknown]
  - Cataract [Unknown]
  - Pancreatitis [Unknown]
  - Nausea [Unknown]
  - Anaemia [Unknown]
  - Diarrhoea [Unknown]
  - Fatigue [Unknown]
  - Decreased appetite [Unknown]
  - Weight decreased [Unknown]
